FAERS Safety Report 9255837 (Version 1)
Quarter: 2013Q2

REPORT INFORMATION
  Report Type: Spontaneous
  Country: US (occurrence: US)
  Receive Date: 20130425
  Receipt Date: 20130425
  Transmission Date: 20140414
  Serious: Yes (Death, Other)
  Sender: FDA-Public Use
  Company Number: US-ALEXION PHARMACEUTICALS INC.-A201300843

PATIENT
  Age: 18 Year
  Sex: Female

DRUGS (2)
  1. SOLIRIS 300MG [Suspect]
     Indication: THROMBOTIC MICROANGIOPATHY
     Route: 042
  2. SOLIRIS 300MG [Suspect]
     Indication: OFF LABEL USE

REACTIONS (5)
  - Multi-organ failure [Fatal]
  - Intestinal perforation [Fatal]
  - Enterococcal infection [Unknown]
  - Klebsiella infection [Unknown]
  - Systemic mycosis [Unknown]
